FAERS Safety Report 21506912 (Version 1)
Quarter: 2022Q4

REPORT INFORMATION
  Report Type: Spontaneous
  Country: US (occurrence: US)
  Receive Date: 20221026
  Receipt Date: 20221026
  Transmission Date: 20230113
  Serious: No
  Sender: FDA-Public Use
  Company Number: US-SA-SAC20221019001940

PATIENT
  Sex: Female

DRUGS (2)
  1. DUPIXENT [Suspect]
     Active Substance: DUPILUMAB
     Dosage: 300MG EVERY OTHER WEEK
     Route: 058
     Dates: start: 202209
  2. ISOTRETINOIN [Suspect]
     Active Substance: ISOTRETINOIN

REACTIONS (2)
  - Rash [Unknown]
  - Dry skin [Unknown]
